FAERS Safety Report 8803153 (Version 3)
Quarter: 2012Q4

REPORT INFORMATION
  Report Type: 
  Country: GB (occurrence: GB)
  Receive Date: 20120924
  Receipt Date: 20121022
  Transmission Date: 20130627
  Serious: Yes (Other)
  Sender: FDA-Public Use
  Company Number: PHFR2012GB005039

PATIENT
  Age: 54 Year
  Sex: Female

DRUGS (4)
  1. CLOZARIL [Suspect]
     Indication: SCHIZOAFFECTIVE DISORDER
     Dosage: 350 mg, daily
     Route: 048
     Dates: start: 20120904
  2. ARIPIPRAZOLE [Concomitant]
  3. CLOMIPRAMINE [Concomitant]
  4. QUETIAPINE [Concomitant]

REACTIONS (8)
  - Cardiac disorder [Recovered/Resolved]
  - Oedema peripheral [Recovering/Resolving]
  - Pericardial effusion [Recovered/Resolved]
  - Electrocardiogram QT prolonged [Not Recovered/Not Resolved]
  - C-reactive protein increased [Recovering/Resolving]
  - White blood cell count increased [Recovered/Resolved]
  - Neutrophil count increased [Recovered/Resolved]
  - Platelet count increased [Recovered/Resolved]
